FAERS Safety Report 25054294 (Version 3)
Quarter: 2025Q3

REPORT INFORMATION
  Report Type: Spontaneous
  Country: US (occurrence: US)
  Receive Date: 20250307
  Receipt Date: 20250724
  Transmission Date: 20251021
  Serious: No
  Sender: SANOFI AVENTIS
  Company Number: US-SA-2025SA065277

PATIENT
  Sex: Female

DRUGS (2)
  1. DUPIXENT [Suspect]
     Active Substance: DUPILUMAB
     Indication: Eczema
     Route: 058
     Dates: start: 20241107, end: 20241107
  2. DUPIXENT [Suspect]
     Active Substance: DUPILUMAB
     Dosage: 200 MG, QOW
     Route: 058
     Dates: start: 2024

REACTIONS (6)
  - Rash vesicular [Recovered/Resolved]
  - Rash erythematous [Recovered/Resolved]
  - Inflammation [Recovered/Resolved]
  - Therapeutic response shortened [Recovered/Resolved]
  - Injection site mass [Unknown]
  - Condition aggravated [Unknown]
